FAERS Safety Report 4769026-2 (Version None)
Quarter: 2005Q3

REPORT INFORMATION
  Report Type: 
  Country: None (occurrence: None)
  Receive Date: 20050913
  Receipt Date: 20050906
  Transmission Date: 20060218
  Serious: Yes (Hospitalization)
  Sender: FDA-Public Use
  Company Number: 2005064970

PATIENT
  Age: 76 Year
  Sex: Male

DRUGS (11)
  1. LIPITOR [Suspect]
     Indication: ILL-DEFINED DISORDER
     Dosage: 20 MG (1 D), ORAL
     Route: 048
     Dates: start: 20010801, end: 20050420
  2. MAGNESIUM OXIDE (MAGNESIUM OXIDE) [Concomitant]
  3. DILAZEP (DILAZEP) [Concomitant]
  4. ISOSORBIDE MONONITRATE [Concomitant]
  5. ALLOPURINOL [Concomitant]
  6. CONIEL (BENIDIPINE HYDROCHLORIDE) [Concomitant]
  7. LASIX [Concomitant]
  8. ALDACTONE [Concomitant]
  9. NITRAZEPAM [Concomitant]
  10. MARZULENE S (LEVOGLUTAMIDE, SODIUM GUALENATE) [Concomitant]
  11. PL (PYRIDOXAL) [Concomitant]

REACTIONS (7)
  - ASPARTATE AMINOTRANSFERASE INCREASED [None]
  - BLOOD CREATINE PHOSPHOKINASE INCREASED [None]
  - BLOOD CREATININE INCREASED [None]
  - BLOOD LACTATE DEHYDROGENASE INCREASED [None]
  - CARDIAC FAILURE [None]
  - CEREBRAL HAEMORRHAGE [None]
  - RENAL FAILURE [None]
